FAERS Safety Report 20199049 (Version 1)
Quarter: 2021Q4

REPORT INFORMATION
  Report Type: Report from Study
  Country: CN (occurrence: CN)
  Receive Date: 20211217
  Receipt Date: 20211217
  Transmission Date: 20220303
  Serious: Yes (Life-Threatening, Hospitalization, Other)
  Sender: FDA-Public Use
  Company Number: CN-BAYER-2021-207884

PATIENT
  Age: 66 Year
  Sex: Male

DRUGS (1)
  1. NEXAVAR [Suspect]
     Active Substance: SORAFENIB
     Indication: Hepatocellular carcinoma
     Dosage: UNK
     Route: 048

REACTIONS (2)
  - Cerebral haemorrhage [Not Recovered/Not Resolved]
  - Coma [Recovering/Resolving]

NARRATIVE: CASE EVENT DATE: 20210901
